FAERS Safety Report 25820191 (Version 1)
Quarter: 2025Q3

REPORT INFORMATION
  Report Type: Spontaneous
  Country: US (occurrence: US)
  Receive Date: 20250919
  Receipt Date: 20250919
  Transmission Date: 20251021
  Serious: No
  Sender: SANOFI AVENTIS
  Company Number: US-SA-2025SA278333

PATIENT
  Age: 57 Year
  Sex: Male

DRUGS (1)
  1. DUPIXENT [Suspect]
     Active Substance: DUPILUMAB
     Indication: Nasal polyps
     Dosage: 300 MG, QOW
     Route: 058
     Dates: start: 20250306

REACTIONS (5)
  - Nasal congestion [Unknown]
  - Condition aggravated [Unknown]
  - Nasal obstruction [Unknown]
  - Dyspnoea [Unknown]
  - Anosmia [Unknown]

NARRATIVE: CASE EVENT DATE: 20250101
